FAERS Safety Report 25907484 (Version 1)
Quarter: 2025Q4

REPORT INFORMATION
  Report Type: Spontaneous
  Country: EU (occurrence: EU)
  Receive Date: 20251010
  Receipt Date: 20251010
  Transmission Date: 20260117
  Serious: Yes (Other)
  Sender: ALCON
  Company Number: EU-SANTEN OY-2025-AUT-009275

PATIENT

DRUGS (1)
  1. LATANOPROST\NETARSUDIL MESYLATE [Suspect]
     Active Substance: LATANOPROST\NETARSUDIL MESYLATE
     Indication: Ocular hypertension
     Dosage: UNK
     Route: 047
     Dates: end: 20250412

REACTIONS (2)
  - Blindness [Not Recovered/Not Resolved]
  - Vision blurred [Not Recovered/Not Resolved]
